FAERS Safety Report 21683279 (Version 5)
Quarter: 2024Q4

REPORT INFORMATION
  Report Type: Report from Study
  Country: EC (occurrence: EC)
  Receive Date: 20221205
  Receipt Date: 20241001
  Transmission Date: 20250115
  Serious: Yes (Hospitalization, Other)
  Sender: ELI LILLY AND CO
  Company Number: EC-Merck Healthcare KGaA-9367731

PATIENT
  Age: 66 Year
  Sex: Female

DRUGS (1)
  1. CETUXIMAB [Suspect]
     Active Substance: CETUXIMAB
     Indication: Head and neck cancer
     Dosage: 500 MG/M2, 2/M
     Route: 042
     Dates: start: 20220801

REACTIONS (6)
  - Throat irritation [Unknown]
  - Corneal disorder [Not Recovered/Not Resolved]
  - Eye infection [Unknown]
  - Cheilitis [Unknown]
  - Skin irritation [Unknown]
  - Off label use [Unknown]

NARRATIVE: CASE EVENT DATE: 20220801
